FAERS Safety Report 9517852 (Version 2)
Quarter: 2013Q3

REPORT INFORMATION
  Report Type: Spontaneous
  Country: RU (occurrence: RU)
  Receive Date: 20130912
  Receipt Date: 20130913
  Transmission Date: 20140515
  Serious: Yes (Other)
  Sender: FDA-Public Use
  Company Number: RU-ABBOTT-13X-251-1144780-00

PATIENT
  Sex: Male

DRUGS (4)
  1. DEPAKINE CHRONOSPHERE [Suspect]
     Indication: MOOD ALTERED
     Route: 048
     Dates: start: 20130904
  2. DEPAKINE CHRONO [Concomitant]
     Indication: PRODUCT USED FOR UNKNOWN INDICATION
     Dates: end: 2013
  3. LITHIUM CARBONATE [Concomitant]
     Indication: PRODUCT USED FOR UNKNOWN INDICATION
     Dates: start: 20130902
  4. CLOZAPINE [Concomitant]
     Indication: PRODUCT USED FOR UNKNOWN INDICATION
     Dates: start: 20130902

REACTIONS (2)
  - Depressed level of consciousness [Recovered/Resolved]
  - Abnormal behaviour [Recovered/Resolved]
